FAERS Safety Report 9802466 (Version 1)
Quarter: 2014Q1

REPORT INFORMATION
  Report Type: Spontaneous
  Country: GB (occurrence: GB)
  Receive Date: 20140107
  Receipt Date: 20140107
  Transmission Date: 20141002
  Serious: Yes (Hospitalization, Disabling, Other)
  Sender: FDA-Public Use
  Company Number: PHHY2014GB000467

PATIENT
  Sex: 0

DRUGS (4)
  1. GENTAMICIN [Suspect]
     Indication: MYCOBACTERIUM AVIUM COMPLEX INFECTION
     Dosage: 80 MG, TID
     Route: 048
     Dates: start: 20130722, end: 20131114
  2. CLARITHROMYCIN [Suspect]
     Indication: MYCOBACTERIUM AVIUM COMPLEX INFECTION
     Dosage: 500 MG, BID
     Route: 048
     Dates: start: 20130722, end: 20131114
  3. ETHAMBUTOL [Suspect]
     Indication: MYCOBACTERIUM AVIUM COMPLEX INFECTION
     Dosage: 1200 MG, QD
     Route: 048
     Dates: start: 20130722, end: 20131114
  4. CO-TRIMOXAZOLE [Suspect]
     Indication: MYCOBACTERIUM AVIUM COMPLEX INFECTION
     Dosage: 480 MG BID
     Route: 048
     Dates: start: 20130722, end: 20131114

REACTIONS (7)
  - Vertigo [Recovered/Resolved with Sequelae]
  - Dizziness [Recovered/Resolved with Sequelae]
  - Headache [Recovered/Resolved with Sequelae]
  - Ear discomfort [Recovered/Resolved with Sequelae]
  - Tinnitus [Recovered/Resolved with Sequelae]
  - Palpitations [Recovered/Resolved]
  - Nausea [Recovered/Resolved with Sequelae]
